FAERS Safety Report 8837045 (Version 1)
Quarter: 2012Q4

REPORT INFORMATION
  Report Type: Spontaneous
  Country: US (occurrence: None)
  Receive Date: 20121011
  Receipt Date: 20121011
  Transmission Date: 20130627
  Serious: No
  Sender: FDA-Public Use
  Company Number: None

PATIENT
  Age: 55 Year
  Sex: Male
  Weight: 76.2 kg

DRUGS (1)
  1. BUPROPION [Suspect]
     Indication: DEPRESSION
     Dosage: MG PO
     Route: 048
     Dates: start: 20120818, end: 20120907

REACTIONS (6)
  - Aggression [None]
  - Self injurious behaviour [None]
  - Agitation [None]
  - Confusional state [None]
  - Suicidal ideation [None]
  - Anger [None]
